FAERS Safety Report 23970730 (Version 3)
Quarter: 2024Q3

REPORT INFORMATION
  Report Type: Spontaneous
  Country: TW (occurrence: TW)
  Receive Date: 20240613
  Receipt Date: 20240705
  Transmission Date: 20241016
  Serious: Yes (Death, Hospitalization, Other)
  Sender: ASTELLAS
  Company Number: TW-ASTELLAS-2024US016148

PATIENT
  Age: 68 Year
  Sex: Male

DRUGS (16)
  1. PADCEV [Suspect]
     Active Substance: ENFORTUMAB VEDOTIN-EJFV
     Indication: Hepatocellular carcinoma
     Dosage: 60 MG, CYCLIC, (C1D1)
     Route: 041
     Dates: start: 20240402
  2. PADCEV [Suspect]
     Active Substance: ENFORTUMAB VEDOTIN-EJFV
     Dosage: 60 MG, CYCLIC (C1D8) (SECOND DOSE)
     Route: 041
     Dates: start: 20240409
  3. TRAMADOL [Concomitant]
     Active Substance: TRAMADOL\TRAMADOL HYDROCHLORIDE
     Indication: Product used for unknown indication
     Dosage: 100 MG, ONCE DAILY, (HS)
     Route: 048
     Dates: start: 20240311, end: 20240412
  4. CEFUROXIME [Concomitant]
     Active Substance: CEFUROXIME
     Indication: Product used for unknown indication
     Route: 048
     Dates: start: 20240404, end: 20240412
  5. SPIRONOLACTONE [Concomitant]
     Active Substance: SPIRONOLACTONE
     Indication: Product used for unknown indication
     Dosage: 25 MG, ONCE DAILY, (PRN)
     Route: 048
     Dates: start: 20240402, end: 20240415
  6. ALBUMIN HUMAN [Concomitant]
     Active Substance: ALBUMIN HUMAN
     Indication: Product used for unknown indication
     Route: 042
     Dates: start: 20240401, end: 20240403
  7. ESOMEPRAZOLE [Concomitant]
     Active Substance: ESOMEPRAZOLE
     Indication: Product used for unknown indication
     Dosage: 40 MG, ONCE DAILY, (QD)
     Route: 048
     Dates: start: 20240311, end: 20240415
  8. LACTULOSE [Concomitant]
     Active Substance: LACTULOSE
     Indication: Product used for unknown indication
     Route: 048
     Dates: start: 20240404, end: 20240415
  9. ATIVAN [Concomitant]
     Active Substance: LORAZEPAM
     Indication: Product used for unknown indication
     Dosage: 0.5 MG, ONCE DAILY, (ATIVAN 0.5 MG PO HS)
     Route: 048
     Dates: start: 20240401, end: 20240412
  10. NIVOLUMAB [Concomitant]
     Active Substance: NIVOLUMAB
     Indication: Product used for unknown indication
     Dosage: UNK UNK, UNKNOWN FREQ.
     Route: 065
     Dates: start: 20231204, end: 20240409
  11. THALIDOMIDE [Concomitant]
     Active Substance: THALIDOMIDE
     Indication: Product used for unknown indication
     Dosage: UNK UNK, UNKNOWN FREQ.
     Route: 048
     Dates: start: 20240308, end: 20240322
  12. THALIDOMIDE [Concomitant]
     Active Substance: THALIDOMIDE
     Dosage: 100 MG, ONCE DAILY, (HS)
     Route: 048
     Dates: start: 20240311, end: 20240330
  13. LONZUMIN [Concomitant]
     Indication: Product used for unknown indication
     Dosage: 25 MG, ONCE DAILY, (HS)
     Route: 048
     Dates: start: 20240311, end: 20240330
  14. CEPHALEXIN [Concomitant]
     Active Substance: CEPHALEXIN
     Indication: Product used for unknown indication
     Dosage: UNK UNK, UNKNOWN FREQ.(SINCE 08-FEB-2024 APPROXIMATELY 14)
     Route: 065
     Dates: start: 202402
  15. LEVOTHYROXINE [Concomitant]
     Active Substance: LEVOTHYROXINE\LEVOTHYROXINE SODIUM
     Indication: Product used for unknown indication
     Dosage: UNK UNK, UNKNOWN FREQ.
     Route: 065
  16. NEXIUM [Concomitant]
     Active Substance: ESOMEPRAZOLE MAGNESIUM
     Indication: Duodenal ulcer
     Dosage: UNK UNK, UNKNOWN FREQ.
     Route: 065

REACTIONS (5)
  - Skin reaction [Recovered/Resolved]
  - Malignant neoplasm progression [Fatal]
  - Hypotension [Fatal]
  - Blood bilirubin increased [Fatal]
  - Off label use [Unknown]

NARRATIVE: CASE EVENT DATE: 20240402
